FAERS Safety Report 9034035 (Version 1)
Quarter: 2013Q1

REPORT INFORMATION
  Report Type: Spontaneous
  Country: US (occurrence: US)
  Receive Date: 20130128
  Receipt Date: 20130128
  Transmission Date: 20140127
  Serious: Yes (Hospitalization)
  Sender: FDA-Public Use
  Company Number: US-AMGEN-USASP2012063323

PATIENT
  Age: 30 Year
  Sex: Female

DRUGS (1)
  1. ENBREL [Suspect]
     Indication: PSORIASIS
     Dosage: UNK UNK, QWK
     Dates: start: 20120123, end: 201207

REACTIONS (4)
  - Dehydration [Recovered/Resolved]
  - Pharyngitis streptococcal [Recovered/Resolved]
  - Tonsillitis bacterial [Recovered/Resolved]
  - Psoriasis [Recovered/Resolved]
